FAERS Safety Report 23134190 (Version 1)
Quarter: 2023Q4

REPORT INFORMATION
  Report Type: Spontaneous
  Country: BR (occurrence: BR)
  Receive Date: 20231101
  Receipt Date: 20231101
  Transmission Date: 20240110
  Serious: Yes (Death, Hospitalization, Other)
  Sender: FDA-Public Use
  Company Number: BR-AMNEAL PHARMACEUTICALS-2023-AMRX-03772

PATIENT
  Age: 40 Year
  Sex: Female
  Weight: 79.4 kg

DRUGS (4)
  1. CHLOROQUINE PHOSPHATE [Suspect]
     Active Substance: CHLOROQUINE PHOSPHATE
     Indication: Plasmodium vivax infection
     Dosage: 600 MILLIGRAM- FIRST DAY
     Route: 065
     Dates: start: 20191213, end: 201912
  2. CHLOROQUINE PHOSPHATE [Suspect]
     Active Substance: CHLOROQUINE PHOSPHATE
     Dosage: 450 MG- SECOND AND THIRD DAYS
     Route: 065
     Dates: start: 201912, end: 201912
  3. PRIMAQUINE [Concomitant]
     Active Substance: PRIMAQUINE
     Indication: Plasmodium vivax infection
     Dosage: 30 MG/DAY- 7 DAYS
  4. ARTESUNATE [Concomitant]
     Active Substance: ARTESUNATE
     Indication: Plasmodium vivax infection
     Dosage: 2.4 MILLIGRAM/KILOGRAM

REACTIONS (2)
  - Acute respiratory distress syndrome [Unknown]
  - Cardiac arrest [Fatal]

NARRATIVE: CASE EVENT DATE: 20191201
